FAERS Safety Report 17762635 (Version 2)
Quarter: 2020Q3

REPORT INFORMATION
  Report Type: Spontaneous
  Country: ES (occurrence: ES)
  Receive Date: 20200508
  Receipt Date: 20200703
  Transmission Date: 20201102
  Serious: Yes (Hospitalization, Other)
  Sender: FDA-Public Use
  Company Number: NVSC2020ES124876

PATIENT
  Age: 47 Year
  Sex: Female

DRUGS (3)
  1. LINEZOLID. [Suspect]
     Active Substance: LINEZOLID
     Dosage: 600 MG, Q24H
     Route: 048
     Dates: start: 20180724, end: 201808
  2. IMIPENEM [Concomitant]
     Active Substance: IMIPENEM
     Indication: PULMONARY NOCARDIOSIS
     Dosage: UNK
     Route: 042
     Dates: end: 201808
  3. LINEZOLID. [Suspect]
     Active Substance: LINEZOLID
     Indication: PULMONARY NOCARDIOSIS
     Dosage: 600 MG, Q12H
     Route: 048
     Dates: start: 201805

REACTIONS (7)
  - Neutropenia [Recovering/Resolving]
  - Anaemia [Recovered/Resolved]
  - Product use in unapproved indication [Unknown]
  - Thrombocytopenia [Recovering/Resolving]
  - Rash [Unknown]
  - Blood disorder [Unknown]
  - Hepatotoxicity [Unknown]

NARRATIVE: CASE EVENT DATE: 2018
